FAERS Safety Report 7231247-7 (Version None)
Quarter: 2011Q1

REPORT INFORMATION
  Report Type: 
  Country: None (occurrence: None)
  Receive Date: 20110118
  Receipt Date: 20110110
  Transmission Date: 20110831
  Serious: Yes (Hospitalization)
  Sender: FDA-Public Use
  Company Number: B0694112A

PATIENT
  Sex: Female

DRUGS (6)
  1. ABILIFY [Suspect]
     Indication: BIPOLAR DISORDER
     Route: 065
  2. CIPRALEX [Suspect]
     Indication: BIPOLAR DISORDER
     Dosage: 20MG PER DAY
     Route: 065
  3. LAMICTAL [Suspect]
     Route: 065
  4. MAREVAN [Concomitant]
  5. BURINEX [Suspect]
     Dosage: 1MG PER DAY
     Route: 065
  6. SPIRIX [Suspect]
     Dosage: 25MG PER DAY
     Route: 065

REACTIONS (1)
  - HYPONATRAEMIA [None]
